FAERS Safety Report 9474930 (Version 1)
Quarter: 2013Q3

REPORT INFORMATION
  Report Type: Report from Study
  Country: SE (occurrence: SE)
  Receive Date: 20130823
  Receipt Date: 20130823
  Transmission Date: 20140515
  Serious: Yes (Other)
  Sender: FDA-Public Use
  Company Number: SE-ROCHE-1265465

PATIENT
  Age: 73 Year
  Sex: Female
  Weight: 91 kg

DRUGS (11)
  1. TOCILIZUMAB [Suspect]
     Indication: RHEUMATOID ARTHRITIS
     Route: 065
     Dates: start: 20130327
  2. PREDNISOLON [Concomitant]
     Route: 065
     Dates: start: 20110323
  3. METHOTREXATE [Concomitant]
     Route: 065
     Dates: start: 20070208, end: 20130103
  4. ORUDIS RETARD [Concomitant]
     Route: 065
     Dates: start: 20070228
  5. LEVAXIN [Concomitant]
  6. CALCICHEW [Concomitant]
     Route: 065
     Dates: start: 20110323
  7. OMEPRAZOLE [Concomitant]
  8. PANODIL [Concomitant]
  9. FURIX [Concomitant]
     Route: 065
     Dates: start: 20130429
  10. HERACILLIN [Concomitant]
     Route: 065
     Dates: start: 20130430, end: 20130508
  11. KLINDAMYCIN [Concomitant]
     Route: 065
     Dates: start: 20130508, end: 20130521

REACTIONS (2)
  - Cardiac failure [Not Recovered/Not Resolved]
  - Rash [Recovered/Resolved]
